FAERS Safety Report 14321287 (Version 1)
Quarter: 2017Q4

REPORT INFORMATION
  Report Type: Spontaneous
  Country: CN (occurrence: CN)
  Receive Date: 20171223
  Receipt Date: 20171223
  Transmission Date: 20180321
  Serious: Yes (Congenital Anomaly, Other)
  Sender: FDA-Public Use
  Company Number: PHHY2017CN185349

PATIENT
  Weight: .89 kg

DRUGS (6)
  1. METHYLPREDNISOLONE. [Suspect]
     Active Substance: METHYLPREDNISOLONE
     Indication: FOETAL EXPOSURE DURING PREGNANCY
     Dosage: (MATERNAL DOSE: 8 MG DAILY)
     Route: 064
     Dates: start: 201608
  2. METHYLPREDNISOLONE. [Suspect]
     Active Substance: METHYLPREDNISOLONE
     Dosage: (MATERNAL DOSE: 16 MG DAILY)
     Route: 064
     Dates: end: 201703
  3. METHYLPREDNISOLONE. [Suspect]
     Active Substance: METHYLPREDNISOLONE
     Dosage: (MATERNAL DOSE: 12 MG DAILY)
     Route: 064
     Dates: start: 201703
  4. FOLIC ACID. [Suspect]
     Active Substance: FOLIC ACID
     Indication: FOETAL EXPOSURE DURING PREGNANCY
     Dosage: UNK
     Route: 064
     Dates: start: 201609
  5. DYDROGESTERONE [Suspect]
     Active Substance: DYDROGESTERONE
     Indication: FOETAL EXPOSURE DURING PREGNANCY
     Dosage: (MATERNAL DOSE: 10 MG EVERY 8 H FOR 2 WEEKS)
     Route: 064
  6. VITAMIN E [Suspect]
     Active Substance: .ALPHA.-TOCOPHEROL
     Indication: FOETAL EXPOSURE DURING PREGNANCY
     Dosage: UNK
     Route: 064
     Dates: start: 201609

REACTIONS (3)
  - Foetal exposure during pregnancy [Unknown]
  - Ectrodactyly [Unknown]
  - Low birth weight baby [Unknown]
